FAERS Safety Report 26151321 (Version 1)
Quarter: 2025Q4

REPORT INFORMATION
  Report Type: Spontaneous
  Country: US (occurrence: None)
  Receive Date: 20251211
  Receipt Date: 20251211
  Transmission Date: 20260117
  Serious: No
  Sender: FDA-CTU
  Company Number: None

PATIENT
  Age: 9 Month
  Sex: Female
  Weight: 76.5 kg

DRUGS (5)
  1. SEMAGLUTIDE [Suspect]
     Active Substance: SEMAGLUTIDE
     Indication: Weight decreased
     Dosage: 1 20 UNITS 1 TIME A WEEK SUBCUTANEOUS
     Route: 058
     Dates: start: 20251001
  2. VITAMIN D [Concomitant]
     Active Substance: VITAMIN D NOS
  3. MAGNESIUM [Concomitant]
     Active Substance: MAGNESIUM
  4. VITAMINS [Concomitant]
     Active Substance: VITAMINS
  5. HERBALS\TURMERIC [Concomitant]
     Active Substance: HERBALS\TURMERIC

REACTIONS (4)
  - Decreased appetite [None]
  - Loss of therapeutic response [None]
  - Suspected product quality issue [None]
  - Suspected counterfeit product [None]

NARRATIVE: CASE EVENT DATE: 20251101
